FAERS Safety Report 6804049-0 (Version None)
Quarter: 2010Q2

REPORT INFORMATION
  Report Type: 
  Country: None (occurrence: None)
  Receive Date: 20100628
  Receipt Date: 20060930
  Transmission Date: 20101027
  Serious: Yes (Other)
  Sender: FDA-Public Use
  Company Number: US-PFIZER INC-2006086644

PATIENT
  Sex: Male
  Weight: 99.79 kg

DRUGS (8)
  1. SUTENT [Interacting]
     Indication: RENAL CELL CARCINOMA
     Dates: start: 20060628
  2. DILTIAZEM [Interacting]
     Indication: BLOOD PRESSURE
  3. TRAMADOL HCL [Suspect]
     Indication: PAIN
     Dates: start: 20060703
  4. PINDOLOL [Suspect]
     Indication: BLOOD PRESSURE
     Dates: start: 20060701
  5. PLAVIX [Concomitant]
  6. ACEON [Concomitant]
  7. DOXAZOSIN MESYLATE [Concomitant]
  8. AREDIA [Concomitant]

REACTIONS (5)
  - BLOOD PRESSURE INCREASED [None]
  - DRUG INTERACTION [None]
  - INSOMNIA [None]
  - NAUSEA [None]
  - PAIN [None]
